FAERS Safety Report 4394588-7 (Version None)
Quarter: 2004Q3

REPORT INFORMATION
  Report Type: 
  Country: None (occurrence: None)
  Receive Date: 20040707
  Receipt Date: 20040623
  Transmission Date: 20050211
  Serious: Yes (Hospitalization, Other)
  Sender: FDA-Public Use
  Company Number: US-JNJFOC-20040606613

PATIENT
  Age: 32 Year
  Sex: Male
  Weight: 119.296 kg

DRUGS (11)
  1. REMICADE [Suspect]
     Indication: RHEUMATOID ARTHRITIS
     Dosage: SEE IMAGE
     Route: 042
     Dates: end: 20030101
  2. REMICADE [Suspect]
     Indication: RHEUMATOID ARTHRITIS
     Dosage: SEE IMAGE
     Route: 042
     Dates: start: 20040609
  3. REMICADE [Suspect]
     Indication: RHEUMATOID ARTHRITIS
     Dosage: SEE IMAGE
     Route: 042
     Dates: start: 20040623
  4. METHOTREXATE [Concomitant]
  5. FOLIC ACID [Concomitant]
  6. GLUCOPHAGE XR (METFORMIN HYDROCHLORIDE) [Concomitant]
  7. CRESTOR (ALL OTHER THERAPEUTOC PRODUCTS) [Concomitant]
  8. CATAPLEX B (ALL OTHER THERAPUETIC PRODUCTS) [Concomitant]
  9. SOLU-MEDROL [Concomitant]
  10. ZYRTEC [Concomitant]
  11. TYLENOL [Concomitant]

REACTIONS (9)
  - CHEST DISCOMFORT [None]
  - DIABETES MELLITUS [None]
  - DYSPNOEA [None]
  - FLUSHING [None]
  - HEADACHE [None]
  - INFUSION RELATED REACTION [None]
  - LUNG DISORDER [None]
  - TUBERCULIN TEST POSITIVE [None]
  - WHEEZING [None]
